FAERS Safety Report 19446266 (Version 1)
Quarter: 2021Q2

REPORT INFORMATION
  Report Type: Other
  Country: GB (occurrence: GB)
  Receive Date: 20210622
  Receipt Date: 20210622
  Transmission Date: 20210717
  Serious: Yes (Disabling, Other)
  Sender: FDA-Public Use
  Company Number: GB-LUPIN PHARMACEUTICALS INC.-2021-09558

PATIENT
  Age: 57 Year
  Sex: Female
  Weight: 82.55 kg

DRUGS (6)
  1. DEPIXOL (FLUPENTIXOL DIHYDROCHLORIDE) [Suspect]
     Active Substance: FLUPENTIXOL DIHYDROCHLORIDE
     Indication: BIPOLAR DISORDER
     Dosage: 9 MILLIGRAM, QD
     Route: 048
     Dates: start: 2001, end: 202008
  2. LITHIUM. [Suspect]
     Active Substance: LITHIUM
     Indication: BIPOLAR DISORDER
     Dosage: 800 MILLIGRAM, QD
     Route: 048
     Dates: start: 2002
  3. SERTRALINE [Suspect]
     Active Substance: SERTRALINE HYDROCHLORIDE
     Indication: BIPOLAR DISORDER
     Dosage: 100 MILLIGRAM, QD
     Route: 048
     Dates: start: 2000
  4. TRAZODONE [Suspect]
     Active Substance: TRAZODONE HYDROCHLORIDE
     Indication: BIPOLAR DISORDER
     Dosage: 600 MILLIGRAM
     Route: 048
     Dates: start: 2001
  5. TRAZODONE [Suspect]
     Active Substance: TRAZODONE HYDROCHLORIDE
     Dosage: 150 MILLIGRAM
     Route: 048
  6. DEPAKOTE [Suspect]
     Active Substance: DIVALPROEX SODIUM
     Indication: BIPOLAR DISORDER
     Dosage: 500 MILLIGRAM, QD
     Route: 048
     Dates: start: 2016

REACTIONS (5)
  - Tremor [Not Recovered/Not Resolved]
  - Gait disturbance [Not Recovered/Not Resolved]
  - Confusional state [Not Recovered/Not Resolved]
  - Memory impairment [Not Recovered/Not Resolved]
  - Parkinsonism [Unknown]

NARRATIVE: CASE EVENT DATE: 2014
